FAERS Safety Report 23824298 (Version 1)
Quarter: 2024Q2

REPORT INFORMATION
  Report Type: Spontaneous
  Country: US (occurrence: US)
  Receive Date: 20240507
  Receipt Date: 20240507
  Transmission Date: 20240716
  Serious: Yes (Other)
  Sender: FDA-Public Use
  Company Number: US-MELINTA THERAPEUTICS, LLC-US-MLNT-24-00221

PATIENT

DRUGS (2)
  1. REZZAYO [Suspect]
     Active Substance: REZAFUNGIN
     Indication: Candida infection
     Dosage: UNK
     Route: 042
     Dates: start: 202309
  2. REZZAYO [Suspect]
     Active Substance: REZAFUNGIN
     Indication: Septic embolus

REACTIONS (2)
  - Mycetoma mycotic [Unknown]
  - Fungal cystitis [Unknown]
